FAERS Safety Report 18252189 (Version 1)
Quarter: 2020Q3

REPORT INFORMATION
  Report Type: Spontaneous
  Country: US (occurrence: US)
  Receive Date: 20200910
  Receipt Date: 20200910
  Transmission Date: 20201103
  Serious: No
  Sender: FDA-Public Use
  Company Number: US-FARMAPROD-202005-0668

PATIENT
  Sex: Female
  Weight: 57 kg

DRUGS (2)
  1. TIMOPTIC [Concomitant]
     Active Substance: TIMOLOL MALEATE
  2. OXERVATE [Suspect]
     Active Substance: CENEGERMIN-BKBJ
     Indication: KERATITIS
     Route: 047
     Dates: start: 20200417

REACTIONS (4)
  - Eye irritation [Unknown]
  - Product storage error [Unknown]
  - Product administration error [Unknown]
  - Eye pain [Unknown]
